FAERS Safety Report 4919523-1 (Version None)
Quarter: 2006Q1

REPORT INFORMATION
  Report Type: 
  Country: None (occurrence: None)
  Receive Date: 20060216
  Receipt Date: 20060201
  Transmission Date: 20060701
  Serious: Yes (Hospitalization)
  Sender: FDA-Public Use
  Company Number: 222064

PATIENT
  Age: 71 Year

DRUGS (3)
  1. AVASTIN [Suspect]
     Indication: PANCREATIC CARCINOMA
     Dosage: 5 MG/KG, INTRAVENOUS
     Route: 042
     Dates: start: 20051205
  2. CAPECITABINE (CAPECITABINE) [Suspect]
     Indication: PANCREATIC CARCINOMA
     Dosage: 825 MG/KG, ORAL
     Route: 048
     Dates: start: 20051205
  3. RADIATION THERAPY (RADIATION THERAPY) [Concomitant]

REACTIONS (3)
  - ANOREXIA [None]
  - DEHYDRATION [None]
  - WEIGHT DECREASED [None]
